FAERS Safety Report 6243099-2 (Version None)
Quarter: 2009Q2

REPORT INFORMATION
  Report Type: 
  Country: None (occurrence: None)
  Receive Date: 20090624
  Receipt Date: 20090619
  Transmission Date: 20091009
  Serious: Yes (Hospitalization)
  Sender: FDA-Public Use
  Company Number: US-B.I. PHARMACEUTICALS,INC./RIDGEFIELD-2009-BP-05753BP

PATIENT
  Sex: Male

DRUGS (12)
  1. FLOMAX [Suspect]
     Indication: BENIGN PROSTATIC HYPERPLASIA
     Dosage: 0.4 MG
     Route: 048
     Dates: start: 20090312, end: 20090419
  2. FLOMAX [Suspect]
     Indication: POLLAKIURIA
  3. CLARINEX [Concomitant]
     Indication: MULTIPLE ALLERGIES
  4. BENICAR [Concomitant]
     Indication: HYPERTENSION
  5. FLONASE (GENERIC) [Concomitant]
     Indication: MULTIPLE ALLERGIES
  6. LOW DOSE ASA [Concomitant]
     Indication: ARTHRITIS
  7. SUBLINUAL ALLERGY GTTS [Concomitant]
     Indication: MULTIPLE ALLERGIES
     Route: 060
  8. TOPICAL OINTMENTS FOR ITCH [Concomitant]
     Indication: MULTIPLE ALLERGIES
  9. TOPICAL OINTMENTS FOR ITCH [Concomitant]
     Indication: PRURITUS
  10. FLU SHOT [Concomitant]
  11. AFRIN [Concomitant]
  12. TRAMADOL HCL [Concomitant]

REACTIONS (2)
  - CHEST PAIN [None]
  - NASAL CONGESTION [None]
